FAERS Safety Report 10169299 (Version 2)
Quarter: 2014Q3

REPORT INFORMATION
  Report Type: Report from Study
  Country: CA (occurrence: CA)
  Receive Date: 20140513
  Receipt Date: 20140806
  Transmission Date: 20150326
  Serious: Yes (Death, Hospitalization, Other)
  Sender: FDA-Public Use
  Company Number: CA-SA-2014SA061688

PATIENT
  Age: 62 Year
  Sex: Female

DRUGS (14)
  1. EPIRUBICIN [Suspect]
     Active Substance: EPIRUBICIN
     Indication: BREAST CANCER
     Dosage: DOSE:170 UNIT(S)
     Route: 065
     Dates: start: 20110722
  2. EPIRUBICIN [Suspect]
     Active Substance: EPIRUBICIN
     Indication: BREAST CANCER
     Dosage: DOSE:170 UNIT(S)
     Route: 065
     Dates: start: 20110812
  3. EPIRUBICIN [Suspect]
     Active Substance: EPIRUBICIN
     Indication: BREAST CANCER
     Dosage: DOSE:170 UNIT(S)
     Route: 065
     Dates: start: 20110902
  4. CASPOFUNGIN [Concomitant]
     Active Substance: CASPOFUNGIN
  5. CYCLOPHOSPHAMIDE. [Suspect]
     Active Substance: CYCLOPHOSPHAMIDE
     Indication: BREAST CANCER
     Dosage: DOSE:870 UNIT(S)
     Route: 065
     Dates: start: 20110722
  6. FLUOROURACIL. [Suspect]
     Active Substance: FLUOROURACIL
     Indication: BREAST CANCER
     Dosage: DOSE:870 UNIT(S)
     Route: 065
     Dates: start: 20110722
  7. CYCLOPHOSPHAMIDE. [Suspect]
     Active Substance: CYCLOPHOSPHAMIDE
     Indication: BREAST CANCER
     Dosage: DOSE:870 UNIT(S)
     Route: 065
     Dates: start: 20110822
  8. CYCLOPHOSPHAMIDE. [Suspect]
     Active Substance: CYCLOPHOSPHAMIDE
     Indication: BREAST CANCER
     Dosage: DOSE:870 UNIT(S)
     Route: 065
     Dates: start: 20110902
  9. FLUOROURACIL. [Suspect]
     Active Substance: FLUOROURACIL
     Indication: BREAST CANCER
     Dosage: DOSE:870 UNIT(S)
     Route: 065
     Dates: start: 20110812
  10. FLUOROURACIL. [Suspect]
     Active Substance: FLUOROURACIL
     Indication: BREAST CANCER
     Dosage: DOSE:870 UNIT(S)
     Route: 065
     Dates: start: 20110902
  11. DOCETAXEL [Suspect]
     Active Substance: DOCETAXEL
     Indication: BREAST CANCER
     Route: 042
     Dates: start: 20110930
  12. VANCOMYCIN [Concomitant]
     Active Substance: VANCOMYCIN
  13. MEROPENEM. [Concomitant]
     Active Substance: MEROPENEM
  14. G-CSF [Concomitant]
     Active Substance: FILGRASTIM
     Indication: PROPHYLAXIS

REACTIONS (13)
  - Sepsis [Unknown]
  - Renal failure [Unknown]
  - Acidosis [Unknown]
  - Ischaemic enteritis [Unknown]
  - Peritonitis [Unknown]
  - Death [Fatal]
  - Abdominal pain [Unknown]
  - Abscess [Unknown]
  - Gastrointestinal necrosis [Unknown]
  - Gastritis [Unknown]
  - Febrile neutropenia [Unknown]
  - Gas gangrene [Unknown]
  - Large intestine perforation [Unknown]
